FAERS Safety Report 21286685 (Version 1)
Quarter: 2022Q3

REPORT INFORMATION
  Report Type: Report from Study
  Country: US (occurrence: US)
  Receive Date: 20220902
  Receipt Date: 20220902
  Transmission Date: 20221026
  Serious: No
  Sender: FDA-Public Use
  Company Number: US-NOVARTISTESTPH-NVSC2022US195659

PATIENT
  Sex: Male

DRUGS (1)
  1. GILENYA [Suspect]
     Active Substance: FINGOLIMOD HYDROCHLORIDE
     Indication: Heart rate decreased
     Dosage: 0.5 MG, QD
     Route: 048

REACTIONS (2)
  - Heart rate decreased [Unknown]
  - Product use in unapproved indication [Unknown]
